FAERS Safety Report 8189695-7 (Version None)
Quarter: 2012Q1

REPORT INFORMATION
  Report Type: 
  Country: None (occurrence: None)
  Receive Date: 20120305
  Receipt Date: 20120224
  Transmission Date: 20120608
  Serious: Yes (Hospitalization)
  Sender: FDA-Public Use
  Company Number: CA-GDP-12413116

PATIENT
  Sex: Male

DRUGS (1)
  1. CALCITRIOL [Suspect]
     Indication: PSORIASIS
     Dosage: (1 DF QD TOPICAL)
     Route: 061
     Dates: start: 20120130

REACTIONS (1)
  - CEREBROVASCULAR ACCIDENT [None]
